FAERS Safety Report 5176859-X (Version None)
Quarter: 2006Q4

REPORT INFORMATION
  Report Type: 
  Country: None (occurrence: None)
  Receive Date: 20061218
  Receipt Date: 20061206
  Transmission Date: 20070319
  Serious: Yes (Other)
  Sender: FDA-Public Use
  Company Number: PHNU2006DE04062

PATIENT
  Sex: Male

DRUGS (3)
  1. CARBAMAZEPINE [Suspect]
  2. LEPONEX [Suspect]
     Indication: SCHIZOPHRENIA
     Dosage: 300 TO 400 MG/DAY
     Route: 048
     Dates: start: 19960101
  3. LEPONEX [Suspect]

REACTIONS (7)
  - BLOOD COUNT ABNORMAL [None]
  - CARDIAC DISORDER [None]
  - CATATONIA [None]
  - DRUG INTERACTION [None]
  - OSTEITIS [None]
  - PURULENCE [None]
  - TOOTH DISORDER [None]
